FAERS Safety Report 18323092 (Version 1)
Quarter: 2020Q3

REPORT INFORMATION
  Report Type: Spontaneous
  Country: US (occurrence: US)
  Receive Date: 20200929
  Receipt Date: 20200929
  Transmission Date: 20201103
  Serious: No
  Sender: FDA-Public Use
  Company Number: US-BION-008485

PATIENT
  Sex: Female
  Weight: 38.56 kg

DRUGS (1)
  1. IMODIUM A?D [Suspect]
     Active Substance: LOPERAMIDE HYDROCHLORIDE
     Indication: DIARRHOEA
     Dosage: 4 TIMES DAILY; 2 SOFT GELS AT FIRST LOOSE OF STOOL AND 1 SOFT GEL EACH THE FOLLOWING
     Route: 048
     Dates: start: 20191216, end: 20191219

REACTIONS (1)
  - Dry mouth [Not Recovered/Not Resolved]
